FAERS Safety Report 5831076-2 (Version None)
Quarter: 2008Q3

REPORT INFORMATION
  Report Type: 
  Country: None (occurrence: None)
  Receive Date: 20080801
  Receipt Date: 20080722
  Transmission Date: 20090109
  Serious: Yes (Other)
  Sender: FDA-Public Use
  Company Number: GB-ELI_LILLY_AND_COMPANY-GB200801004126

PATIENT
  Sex: Female

DRUGS (3)
  1. OLANZAPINE [Suspect]
     Indication: BIPOLAR DISORDER
     Dosage: 20 MG, UNK
  2. EPILIM [Concomitant]
     Indication: BIPOLAR DISORDER
     Dosage: 1200 MG, UNK
     Route: 048
  3. DIAZEPAM [Concomitant]

REACTIONS (3)
  - HEPATITIS C [None]
  - URINARY INCONTINENCE [None]
  - WEIGHT INCREASED [None]
